FAERS Safety Report 20378105 (Version 1)
Quarter: 2022Q1

REPORT INFORMATION
  Report Type: Spontaneous
  Country: AZ (occurrence: AZ)
  Receive Date: 20220126
  Receipt Date: 20220126
  Transmission Date: 20220423
  Serious: Yes (Death)
  Sender: FDA-Public Use
  Company Number: AZ-NOVARTISPH-NVSC2022AZ016106

PATIENT
  Sex: Male

DRUGS (1)
  1. GLIVEC [Suspect]
     Active Substance: IMATINIB MESYLATE
     Indication: Chronic myeloid leukaemia
     Dosage: 600MG (6 X 100MG TABLETS)
     Route: 065

REACTIONS (2)
  - Prostate cancer [Fatal]
  - Second primary malignancy [Fatal]
